FAERS Safety Report 9816346 (Version 3)
Quarter: 2014Q1

REPORT INFORMATION
  Report Type: Spontaneous
  Country: DE (occurrence: DE)
  Receive Date: 20140114
  Receipt Date: 20140307
  Transmission Date: 20141002
  Serious: Yes (Hospitalization)
  Sender: FDA-Public Use
  Company Number: DE-BAYER-2014-005024

PATIENT
  Age: 51 Year
  Sex: Female

DRUGS (3)
  1. BETAFERON [Suspect]
     Indication: MULTIPLE SCLEROSIS
     Dosage: 8 MIU, QOD
     Dates: start: 1998, end: 2012
  2. EXTAVIA [Suspect]
     Indication: MULTIPLE SCLEROSIS
     Dosage: 250 ?G, QOD
     Route: 058
     Dates: start: 2012
  3. IBUHEXAL [Concomitant]
     Indication: PREMEDICATION

REACTIONS (4)
  - Breast cancer [None]
  - Supraventricular tachycardia [Recovering/Resolving]
  - Bronchitis [None]
  - Colitis [None]
